FAERS Safety Report 5410146-7 (Version None)
Quarter: 2007Q3

REPORT INFORMATION
  Report Type: 
  Country: None (occurrence: None)
  Receive Date: 20070809
  Receipt Date: 20070803
  Transmission Date: 20080115
  Serious: Yes (Other)
  Sender: FDA-Public Use
  Company Number: HR-ABBOTT-07P-216-0376258-00

PATIENT
  Age: 55 Year
  Sex: Female

DRUGS (6)
  1. CYCLOSPORINE [Suspect]
     Indication: IMMUNOSUPPRESSANT DRUG THERAPY
     Dosage: NOT REPORTED
  2. CYCLOSPORINE [Suspect]
     Dosage: NOT REPORTED
  3. MYCOPHENOLATE MOFETIL [Suspect]
     Indication: IMMUNOSUPPRESSANT DRUG THERAPY
     Dosage: NOT REPORTED
  4. MYCOPHENOLATE MOFETIL [Suspect]
     Dosage: NOT REPORTED
  5. LAMIVUDINE [Suspect]
     Indication: HEPATITIS B
     Dosage: NOT REPORTED
  6. LAMIVUDINE [Suspect]
     Indication: HEPATITIS C

REACTIONS (2)
  - NEUROTOXICITY [None]
  - PROGRESSIVE MULTIFOCAL LEUKOENCEPHALOPATHY [None]
